FAERS Safety Report 15479904 (Version 3)
Quarter: 2022Q1

REPORT INFORMATION
  Report Type: Spontaneous
  Country: ES (occurrence: ES)
  Receive Date: 20181009
  Receipt Date: 20220105
  Transmission Date: 20220423
  Serious: Yes (Hospitalization, Other)
  Sender: FDA-Public Use
  Company Number: ES-EMA-DD-20180518-SGALIPALLIP-152042

PATIENT
  Age: 47 Year
  Sex: Male

DRUGS (5)
  1. LAMOTRIGINE [Suspect]
     Active Substance: LAMOTRIGINE
     Indication: Partial seizures
     Dosage: 100 MG,Q12H
     Route: 065
     Dates: start: 1999
  2. PHENYTOIN [Suspect]
     Active Substance: PHENYTOIN
     Indication: Partial seizures
     Dosage: 200 MG, QD
     Route: 065
     Dates: start: 1999
  3. PHENYTOIN [Suspect]
     Active Substance: PHENYTOIN
     Dosage: 100 MG, Q8H
     Route: 065
  4. CLOBAZAM [Suspect]
     Active Substance: CLOBAZAM
     Indication: Partial seizures
     Dosage: 30 MG, QD
     Route: 065
     Dates: start: 1999
  5. CLOBAZAM [Suspect]
     Active Substance: CLOBAZAM
     Dosage: 10 MG, QD
     Route: 065

REACTIONS (17)
  - Vomiting [Recovered/Resolved]
  - Blood creatinine increased [Recovered/Resolved]
  - Blood urea increased [Recovered/Resolved]
  - Renal pain [Recovered/Resolved]
  - Nephritis allergic [Recovered/Resolved]
  - Oliguria [Recovered/Resolved]
  - Renal failure [Recovered/Resolved]
  - Drug reaction with eosinophilia and systemic symptoms [Recovered/Resolved]
  - Creatinine renal clearance decreased [Recovered/Resolved]
  - Alanine aminotransferase increased [Recovered/Resolved]
  - Abdominal pain [Recovered/Resolved]
  - Gamma-glutamyltransferase increased [Recovered/Resolved]
  - Hepatic failure [Recovered/Resolved]
  - Aspartate aminotransferase increased [Recovered/Resolved]
  - Blood alkaline phosphatase increased [Recovered/Resolved]
  - Nausea [Recovered/Resolved]
  - Hepatocellular injury [Recovered/Resolved]

NARRATIVE: CASE EVENT DATE: 20090101
